FAERS Safety Report 4919457-2 (Version None)
Quarter: 2006Q1

REPORT INFORMATION
  Report Type: 
  Country: None (occurrence: None)
  Receive Date: 20060222
  Receipt Date: 20051019
  Transmission Date: 20060701
  Serious: Yes (Hospitalization, Disabling)
  Sender: FDA-Public Use
  Company Number: US-MERCK-0510USA08092

PATIENT
  Age: 57 Year
  Sex: Male
  Weight: 109 kg

DRUGS (7)
  1. VIOXX [Suspect]
     Indication: ARTHRITIS
     Route: 048
     Dates: start: 20030201, end: 20031201
  2. PROZAC [Concomitant]
     Indication: DEPRESSION
     Route: 065
  3. NORVASC [Concomitant]
     Indication: BLOOD PRESSURE
     Route: 065
  4. ALLEGRA [Concomitant]
     Indication: HYPERSENSITIVITY
     Route: 065
  5. CONCERTA [Concomitant]
     Indication: ATTENTION DEFICIT/HYPERACTIVITY DISORDER
     Route: 065
  6. METOPROLOL [Concomitant]
     Indication: HYPERTENSION
     Route: 065
  7. HYDROCODONE BITARTRATE [Concomitant]
     Indication: RESTLESS LEGS SYNDROME
     Route: 065

REACTIONS (5)
  - ADVERSE EVENT [None]
  - CORONARY ARTERY DISEASE [None]
  - DYSPEPSIA [None]
  - MYOCARDIAL INFARCTION [None]
  - SLEEP APNOEA SYNDROME [None]
